FAERS Safety Report 5026429-9 (Version None)
Quarter: 2006Q2

REPORT INFORMATION
  Report Type: 
  Country: None (occurrence: None)
  Receive Date: 20060613
  Receipt Date: 20060613
  Transmission Date: 20061013
  Serious: Yes (Life-Threatening, Hospitalization)
  Sender: FDA-Public Use
  Company Number: None

PATIENT
  Age: 64 Year
  Sex: Male
  Weight: 106.5953 kg

DRUGS (3)
  1. MORPHINE [Suspect]
     Dosage: MORPHINE 20MG/ML  030 DAYS   INTRATHECAL PUMP
     Route: 037
  2. CLONIDINE [Suspect]
     Dosage: CLONIDINE  200MCG/ML
  3. BACLOFEN [Suspect]
     Dosage: BACLOFEN  75 MCG/ML IN 18 ML PFNS

REACTIONS (4)
  - APNOEA [None]
  - ASTHENIA [None]
  - BLOOD PRESSURE DECREASED [None]
  - POST PROCEDURAL COMPLICATION [None]
